FAERS Safety Report 9985583 (Version 1)
Quarter: 2014Q1

REPORT INFORMATION
  Report Type: Spontaneous
  Country: US (occurrence: US)
  Receive Date: 20140307
  Receipt Date: 20140307
  Transmission Date: 20141002
  Serious: Yes (Other)
  Sender: FDA-Public Use
  Company Number: US-GE HEALTHCARE MEDICAL DIAGNOSTICS-OSCN-PR-0812S-0642

PATIENT
  Age: 20 Year
  Sex: Male

DRUGS (10)
  1. OMNISCAN [Suspect]
     Indication: PRODUCT USED FOR UNKNOWN INDICATION
     Route: 065
     Dates: start: 20020820, end: 20020820
  2. OMNISCAN [Suspect]
     Route: 065
     Dates: start: 20020916, end: 20020916
  3. OMNISCAN [Suspect]
     Route: 042
     Dates: start: 20020917, end: 20020917
  4. OMNISCAN [Suspect]
     Route: 065
     Dates: start: 20020917, end: 20020917
  5. OMNISCAN [Suspect]
     Route: 065
     Dates: start: 20020920, end: 20020920
  6. OMNISCAN [Suspect]
     Route: 065
     Dates: start: 20021230, end: 20021230
  7. OMNISCAN [Suspect]
     Route: 065
     Dates: start: 20021231, end: 20021231
  8. OMNISCAN [Suspect]
     Route: 065
     Dates: start: 20030530, end: 20030530
  9. OMNISCAN [Suspect]
     Route: 065
     Dates: start: 20030805, end: 20030805
  10. OMNISCAN [Suspect]
     Route: 065
     Dates: start: 20040322, end: 20040322

REACTIONS (1)
  - Nephrogenic systemic fibrosis [Not Recovered/Not Resolved]
